FAERS Safety Report 21249105 (Version 3)
Quarter: 2023Q1

REPORT INFORMATION
  Report Type: Report from Study
  Country: JP (occurrence: JP)
  Receive Date: 20220824
  Receipt Date: 20230226
  Transmission Date: 20230418
  Serious: Yes (Death, Life-Threatening, Hospitalization, Other)
  Sender: FDA-Public Use
  Company Number: JP-AMGEN-JPNSP2022144967

PATIENT
  Age: 80 Year
  Sex: Male

DRUGS (6)
  1. SOTORASIB [Suspect]
     Active Substance: SOTORASIB
     Indication: K-ras gene mutation
     Dosage: 960 MILLIGRAM, QD
     Route: 048
     Dates: start: 20220325
  2. SOTORASIB [Suspect]
     Active Substance: SOTORASIB
     Indication: Non-small cell lung cancer stage III
     Dosage: 960 MILLIGRAM, QD
     Route: 048
     Dates: start: 20220526, end: 20220729
  3. LEVOTHYROXINE [Concomitant]
     Active Substance: LEVOTHYROXINE
     Indication: Prophylaxis
     Dosage: UNK
     Dates: end: 20220812
  4. Glycyron [Concomitant]
     Indication: Prophylaxis
     Dosage: UNK
     Dates: end: 20220812
  5. FAMOTIDINE [Concomitant]
     Active Substance: FAMOTIDINE
     Indication: Prophylaxis
     Dosage: UNK
     Dates: end: 20220812
  6. Rinderon [Concomitant]
     Indication: Prophylaxis
     Dosage: UNK
     Dates: end: 20220812

REACTIONS (5)
  - Pleural effusion [Fatal]
  - Metastases to central nervous system [Fatal]
  - Metastases to liver [Fatal]
  - Respiratory failure [Fatal]
  - Malaise [Unknown]

NARRATIVE: CASE EVENT DATE: 20220729
